FAERS Safety Report 5566015-5 (Version None)
Quarter: 2007Q4

REPORT INFORMATION
  Report Type: 
  Country: None (occurrence: None)
  Receive Date: 20071219
  Receipt Date: 20050927
  Transmission Date: 20080405
  Serious: Yes (Other)
  Sender: FDA-Public Use
  Company Number: ES-JNJFOC-20071200707

PATIENT
  Age: 51 Year
  Sex: Male
  Weight: 89 kg

DRUGS (4)
  1. HALOPERIDOL [Suspect]
     Indication: SCHIZOPHRENIA
     Route: 048
  2. HALOPERIDOL [Suspect]
     Route: 048
  3. LIPID LOWERING THERAPY [Concomitant]
     Indication: HYPERLIPIDAEMIA
     Route: 065
  4. ANTIULCER THERAPY [Concomitant]
     Route: 065

REACTIONS (1)
  - WEIGHT INCREASED [None]
